FAERS Safety Report 4969465-0 (Version None)
Quarter: 2006Q2

REPORT INFORMATION
  Report Type: 
  Country: None (occurrence: None)
  Receive Date: 20060411
  Receipt Date: 20060208
  Transmission Date: 20061013
  Serious: Yes (Hospitalization)
  Sender: FDA-Public Use
  Company Number: ES-BRISTOL-MYERS SQUIBB COMPANY-13341417

PATIENT
  Age: 80 Year
  Sex: Female

DRUGS (2)
  1. DEPRAX [Suspect]
     Indication: DEPRESSION
     Route: 048
     Dates: start: 20051211, end: 20051215
  2. COTRIM [Suspect]
     Route: 042
     Dates: start: 20051214, end: 20051215

REACTIONS (3)
  - CONFUSIONAL STATE [None]
  - HYPONATRAEMIA [None]
  - SOMNOLENCE [None]
